FAERS Safety Report 20900210 (Version 1)
Quarter: 2022Q2

REPORT INFORMATION
  Report Type: Report from Study
  Country: FR (occurrence: FR)
  Receive Date: 20220601
  Receipt Date: 20220601
  Transmission Date: 20220721
  Serious: Yes (Other)
  Sender: FDA-Public Use
  Company Number: FR-SA-SAC20220530002100

PATIENT
  Age: 66 Year
  Sex: Male
  Weight: 87 kg

DRUGS (20)
  1. ISATUXIMAB [Suspect]
     Active Substance: ISATUXIMAB
     Indication: Plasma cell myeloma
     Dosage: 950 MG, QD
     Dates: start: 20220222, end: 20220222
  2. POMALIDOMIDE [Suspect]
     Active Substance: POMALIDOMIDE
     Indication: Plasma cell myeloma
     Dosage: 4 MG, QD
     Dates: start: 20220222, end: 20220222
  3. POMALIDOMIDE [Suspect]
     Active Substance: POMALIDOMIDE
     Dosage: 4 MG
     Dates: start: 20220310, end: 20220310
  4. CARFILZOMIB [Suspect]
     Active Substance: CARFILZOMIB
     Indication: Plasma cell myeloma
     Dosage: 56 MG, QD
     Dates: start: 20220222, end: 20220222
  5. DEXAMETHASONE [Suspect]
     Active Substance: DEXAMETHASONE
     Indication: Plasma cell myeloma
     Dosage: 40 MG, QD
     Dates: start: 20220222, end: 20220222
  6. DEXAMETHASONE [Suspect]
     Active Substance: DEXAMETHASONE
     Dosage: 40 MG
     Dates: start: 20220308, end: 20220308
  7. ELIQUIS [Concomitant]
     Active Substance: APIXABAN
     Dosage: 5 MG, QD
     Dates: start: 20220222
  8. VALACYCLOVIR HYDROCHLORIDE [Concomitant]
     Active Substance: VALACYCLOVIR HYDROCHLORIDE
     Dosage: 1000 UG, QD
  9. BACTRIM [Concomitant]
     Active Substance: SULFAMETHOXAZOLE\TRIMETHOPRIM
     Dosage: 1 DF, TIW
  10. LEUCOVORIN CALCIUM [Concomitant]
     Active Substance: LEUCOVORIN CALCIUM
     Dosage: 1 DF, QW (SUNDAY)
     Dates: start: 20220227
  11. AMOXICILLIN [Concomitant]
     Active Substance: AMOXICILLIN
     Dosage: 500 UG, Q3W
     Dates: start: 20220222
  12. METFORMIN HYDROCHLORIDE [Concomitant]
     Active Substance: METFORMIN HYDROCHLORIDE
     Dosage: 1000 UG, TID
  13. GLIMEPIRIDE [Concomitant]
     Active Substance: GLIMEPIRIDE
     Dosage: 2 MG, QD
     Dates: start: 20220222
  14. PANTOPRAZOLE [Concomitant]
     Active Substance: PANTOPRAZOLE
     Dosage: 20 UG, QD
     Dates: start: 20220222
  15. SODIUM BICARBONATE [Concomitant]
     Active Substance: SODIUM BICARBONATE
     Dosage: 3 DF, QD
  16. PRIMPERAN [Concomitant]
     Active Substance: METOCLOPRAMIDE HYDROCHLORIDE
     Dosage: 3 DF
     Dates: start: 20220222
  17. TRAMADOL HYDROCHLORIDE [Concomitant]
     Active Substance: TRAMADOL HYDROCHLORIDE
     Dosage: 3 DF
     Dates: start: 20220222
  18. CLINDAMYCIN HYDROCHLORIDE [Concomitant]
     Active Substance: CLINDAMYCIN HYDROCHLORIDE
     Dosage: 600 MG, QD
     Dates: start: 20220311
  19. TOBREX [Concomitant]
     Active Substance: TOBRAMYCIN
     Dosage: 2 DROP, QD
     Dates: start: 20220311
  20. FILGRASTIM [Concomitant]
     Active Substance: FILGRASTIM
     Dosage: 1 DF, QD
     Dates: start: 20220312

REACTIONS (1)
  - Thrombocytopenia [Recovered/Resolved with Sequelae]

NARRATIVE: CASE EVENT DATE: 20220311
